FAERS Safety Report 18553911 (Version 2)
Quarter: 2020Q4

REPORT INFORMATION
  Report Type: Spontaneous
  Country: HR (occurrence: HR)
  Receive Date: 20201127
  Receipt Date: 20201203
  Transmission Date: 20210114
  Serious: Yes (Other)
  Sender: FDA-Public Use
  Company Number: HR-ROCHE-2722838

PATIENT
  Age: 58 Year
  Sex: Female
  Weight: 117 kg

DRUGS (1)
  1. ROACTEMRA [Suspect]
     Active Substance: TOCILIZUMAB
     Indication: RHEUMATOID ARTHRITIS
     Route: 065
     Dates: start: 20200415, end: 20200831

REACTIONS (4)
  - Fatigue [Recovering/Resolving]
  - Oedema peripheral [Recovering/Resolving]
  - Micturition urgency [Recovering/Resolving]
  - Alopecia [Recovering/Resolving]

NARRATIVE: CASE EVENT DATE: 202005
